FAERS Safety Report 23883163 (Version 1)
Quarter: 2024Q2

REPORT INFORMATION
  Report Type: Report from Study
  Country: GB (occurrence: GB)
  Receive Date: 20240522
  Receipt Date: 20240522
  Transmission Date: 20240716
  Serious: Yes (Other)
  Sender: FDA-Public Use
  Company Number: GB-SANDOZ-SDZ2024GB049863

PATIENT
  Sex: Male

DRUGS (1)
  1. OMNITROPE [Suspect]
     Active Substance: SOMATROPIN
     Indication: Hypopituitarism
     Dosage: 0.70 MG, ON
     Route: 058

REACTIONS (4)
  - Neoplasm malignant [Unknown]
  - Growth failure [Unknown]
  - Therapy cessation [Unknown]
  - Malaise [Unknown]
